FAERS Safety Report 5964717-X (Version None)
Quarter: 2008Q4

REPORT INFORMATION
  Report Type: 
  Country: None (occurrence: None)
  Receive Date: 20081124
  Receipt Date: 20081124
  Transmission Date: 20090506
  Serious: No
  Sender: FDA-Public Use
  Company Number: None

PATIENT
  Age: 37 Year
  Sex: Female
  Weight: 81.6475 kg

DRUGS (2)
  1. LEVAQUIN [Suspect]
     Indication: URINARY TRACT INFECTION
     Dosage: 500 MG 1 PO
     Route: 048
     Dates: start: 20071115, end: 20071125
  2. LEVAQUIN [Suspect]
     Indication: URINARY TRACT INFECTION
     Dosage: 500 MG 1 PO
     Route: 048
     Dates: start: 20071205, end: 20071215

REACTIONS (2)
  - CARTILAGE INJURY [None]
  - TENDON INJURY [None]
